FAERS Safety Report 9097115 (Version 1)
Quarter: 2013Q1

REPORT INFORMATION
  Report Type: Spontaneous
  Country: US (occurrence: None)
  Receive Date: 20130125
  Receipt Date: 20130125
  Transmission Date: 20140127
  Serious: Yes (Hospitalization)
  Sender: FDA-Public Use
  Company Number: 2013VX000255

PATIENT
  Sex: Male

DRUGS (1)
  1. EDECRIN [Suspect]
     Indication: PRODUCT USED FOR UNKNOWN INDICATION

REACTIONS (10)
  - Rash [None]
  - Gastric ulcer [None]
  - Weight decreased [None]
  - Arthropathy [None]
  - Fluid retention [None]
  - Dyspnoea [None]
  - Local swelling [None]
  - Blister [None]
  - Blood creatinine increased [None]
  - Inflammation [None]
